FAERS Safety Report 7121857-X (Version None)
Quarter: 2010Q4

REPORT INFORMATION
  Report Type: 
  Country: None (occurrence: None)
  Receive Date: 20101124
  Receipt Date: 20101118
  Transmission Date: 20110411
  Serious: Yes (Other)
  Sender: FDA-Public Use
  Company Number: BR-ROCHE-741181

PATIENT
  Sex: Male

DRUGS (2)
  1. ROACUTAN [Suspect]
     Route: 065
     Dates: start: 20020101, end: 20020101
  2. ROACUTAN [Suspect]
     Route: 065
     Dates: start: 20101001

REACTIONS (3)
  - HELICOBACTER INFECTION [None]
  - HEPATIC STEATOSIS [None]
  - OESOPHAGITIS [None]
